FAERS Safety Report 16161607 (Version 2)
Quarter: 2019Q2

REPORT INFORMATION
  Report Type: Spontaneous
  Country: US (occurrence: US)
  Receive Date: 20190405
  Receipt Date: 20190424
  Transmission Date: 20190711
  Serious: Yes (Hospitalization, Other)
  Sender: FDA-Public Use
  Company Number: US-RECKITT BENCKISER HEALTHCARE INT LIMITED-RB-83587-2019

PATIENT
  Sex: Female
  Weight: 104.33 kg

DRUGS (2)
  1. MUCINEX [Suspect]
     Active Substance: GUAIFENESIN
     Indication: COUGH
     Dosage: UNK (FINISHED TAKING ALL OF THE MUCINEX)
     Route: 065
     Dates: start: 201901, end: 2019
  2. XELJANZ [Suspect]
     Active Substance: TOFACITINIB CITRATE
     Indication: RHEUMATOID ARTHRITIS
     Dosage: 5 MILLIGRAM, QD (1 TABLET BY MOUTH ONCE A DAY)
     Route: 048
     Dates: start: 20190107, end: 20190114

REACTIONS (7)
  - Cardiac failure congestive [Recovered/Resolved]
  - Respiratory failure [Recovered/Resolved]
  - Cough [Recovered/Resolved]
  - Dyspnoea [Unknown]
  - Drug ineffective [Recovered/Resolved]
  - Pneumonia [Recovered/Resolved]
  - Pulmonary embolism [Unknown]

NARRATIVE: CASE EVENT DATE: 2019
